FAERS Safety Report 24835246 (Version 2)
Quarter: 2025Q1

REPORT INFORMATION
  Report Type: Spontaneous
  Country: AU (occurrence: AU)
  Receive Date: 20250113
  Receipt Date: 20250124
  Transmission Date: 20250408
  Serious: Yes (Life-Threatening, Hospitalization, Other)
  Sender: DENTSPLY
  Company Number: AU-DENTSPLY-2025SCDP000010

PATIENT
  Age: 39 Year
  Sex: Male

DRUGS (2)
  1. LIDOCAINE [Suspect]
     Active Substance: LIDOCAINE
     Indication: Nerve block
  2. LIDOCAINE [Suspect]
     Active Substance: LIDOCAINE
     Indication: Priapism

REACTIONS (6)
  - Hallucination, visual [Unknown]
  - Blindness [Unknown]
  - Agitation [Unknown]
  - Accidental overdose [Unknown]
  - Incorrect dose administered [Unknown]
  - Local anaesthetic systemic toxicity [Unknown]
